FAERS Safety Report 5368242-9 (Version None)
Quarter: 2007Q2

REPORT INFORMATION
  Report Type: 
  Country: None (occurrence: None)
  Receive Date: 20070622
  Receipt Date: 20070622
  Transmission Date: 20071010
  Serious: Yes (Other)
  Sender: FDA-Public Use
  Company Number: None

PATIENT
  Age: 78 Year
  Sex: Male
  Weight: 53.7 kg

DRUGS (1)
  1. CETUXIMAB   2MG/ML   IMCLONE  -BMS- [Suspect]
     Indication: NEOPLASM MALIGNANT
     Dosage: 400 MG  WEEKLY  IV DRIP
     Route: 041
     Dates: start: 20061222, end: 20070112

REACTIONS (6)
  - HEART RATE INCREASED [None]
  - MUCOSAL INFLAMMATION [None]
  - SCAB [None]
  - SKIN FISSURES [None]
  - SKIN REACTION [None]
  - WEIGHT DECREASED [None]
